FAERS Safety Report 14506376 (Version 1)
Quarter: 2018Q1

REPORT INFORMATION
  Report Type: Spontaneous
  Country: US (occurrence: US)
  Receive Date: 20180208
  Receipt Date: 20180208
  Transmission Date: 20180509
  Serious: No
  Sender: FDA-Public Use
  Company Number: US-RISING PHARMACEUTICALS, INC.-2017RIS00054

PATIENT
  Age: 49 Year
  Sex: Female
  Weight: 95.24 kg

DRUGS (3)
  1. CIPROFLOXACIN. [Suspect]
     Active Substance: CIPROFLOXACIN
     Indication: SINUSITIS
  2. KEFLEX [Concomitant]
     Active Substance: CEPHALEXIN
     Dosage: 500 MG, 3X/DAY
     Dates: start: 20170312
  3. CIPROFLOXACIN. [Suspect]
     Active Substance: CIPROFLOXACIN
     Indication: CONJUNCTIVITIS
     Dosage: 1 UNK, EVERY 8 HOURS
     Route: 047
     Dates: start: 20170312, end: 20170314

REACTIONS (3)
  - Eye pain [Recovered/Resolved]
  - Ocular hyperaemia [Recovering/Resolving]
  - Eye discharge [Recovered/Resolved]

NARRATIVE: CASE EVENT DATE: 20170312
